FAERS Safety Report 5358107-0 (Version None)
Quarter: 2007Q2

REPORT INFORMATION
  Report Type: 
  Country: None (occurrence: None)
  Receive Date: 20070530
  Receipt Date: 20070206
  Transmission Date: 20071010
  Serious: Yes (Other)
  Sender: FDA-Public Use
  Company Number: US200702001012

PATIENT
  Sex: Male

DRUGS (1)
  1. ZYPREXA [Suspect]
     Dates: start: 20030401, end: 20050301

REACTIONS (5)
  - DIABETES MELLITUS [None]
  - DIABETIC COMA [None]
  - DIABETIC KETOACIDOSIS [None]
  - HYPERGLYCAEMIA [None]
  - PANCREATITIS [None]
